FAERS Safety Report 8556978-8 (Version None)
Quarter: 2012Q3

REPORT INFORMATION
  Report Type: 
  Country: None (occurrence: None)
  Receive Date: 20120801
  Receipt Date: 20120730
  Transmission Date: 20120928
  Serious: Yes (Other)
  Sender: FDA-Public Use
  Company Number: ES-AMGEN-ESPSP2012042542

PATIENT
  Age: 65 Year
  Sex: Female
  Weight: 118 kg

DRUGS (18)
  1. NPLATE [Suspect]
     Indication: IDIOPATHIC THROMBOCYTOPENIC PURPURA
     Dosage: UNK UNK, QWK
     Route: 058
     Dates: start: 20120313
  2. ELTROMBOPAG [Concomitant]
     Indication: IDIOPATHIC THROMBOCYTOPENIC PURPURA
     Dosage: 50 MG, QD
  3. PREDNISONE [Concomitant]
     Dosage: 5 MG, QOD
  4. RONAME [Concomitant]
     Dosage: 2 MG, UNK
  5. RONAME [Concomitant]
     Dosage: 1 MG, UNK
  6. TRANEXAMIC ACID [Concomitant]
     Indication: THROMBOCYTOPENIA
     Dosage: UNK UNK, PRN
  7. COLEMIN [Concomitant]
     Dosage: 20 MG, QD
  8. SUTRILNEO [Concomitant]
     Dosage: 10 MG, QD
  9. RITUXIMAB [Concomitant]
     Indication: IDIOPATHIC THROMBOCYTOPENIC PURPURA
     Dosage: 767 MG, QWK
     Route: 042
     Dates: start: 20120418, end: 20120607
  10. ELTROMBOPAG [Concomitant]
     Dosage: 75 MG, QD
  11. NPLATE [Suspect]
     Dosage: 236 MUG, UNK
     Dates: start: 20120712
  12. OMEPRAZOLE [Concomitant]
     Dosage: 20 MG, QD
  13. NPLATE [Suspect]
     Dosage: UNK
     Dates: start: 20110914, end: 20120223
  14. CANDESARTAN CILEXETIL [Concomitant]
     Dosage: 16 MG, QD
  15. NPLATE [Suspect]
     Dosage: UNK
     Route: 042
  16. LORATADINA [Concomitant]
     Dosage: 10 MG, QD
  17. TRAMADOL HCL [Concomitant]
     Dosage: UNK UNK, PRN
  18. ACETAMINOPHEN [Concomitant]
     Dosage: 650 MG, QD

REACTIONS (2)
  - THERAPEUTIC RESPONSE DECREASED [None]
  - HYPERSENSITIVITY [None]
